FAERS Safety Report 5936901-2 (Version None)
Quarter: 2008Q4

REPORT INFORMATION
  Report Type: 
  Country: None (occurrence: None)
  Receive Date: 20081031
  Receipt Date: 20081020
  Transmission Date: 20090506
  Serious: Yes (Hospitalization)
  Sender: FDA-Public Use
  Company Number: US-JNJFOC-20081003779

PATIENT
  Sex: Male
  Weight: 50.5 kg

DRUGS (7)
  1. REMICADE [Suspect]
     Route: 042
  2. REMICADE [Suspect]
     Route: 042
  3. REMICADE [Suspect]
     Indication: COLITIS ULCERATIVE
     Route: 042
  4. ELAVIL [Concomitant]
  5. METRONIDAZOLE [Concomitant]
  6. LEVAQUIN [Concomitant]
  7. ANTIBIOTIC [Concomitant]

REACTIONS (2)
  - CLOSTRIDIAL INFECTION [None]
  - COLITIS ULCERATIVE [None]
